FAERS Safety Report 17811514 (Version 2)
Quarter: 2020Q2

REPORT INFORMATION
  Report Type: Spontaneous
  Country: US (occurrence: US)
  Receive Date: 20200521
  Receipt Date: 20200522
  Transmission Date: 20200714
  Serious: Yes (Hospitalization)
  Sender: FDA-Public Use
  Company Number: US-PFIZER INC-2020201783

PATIENT
  Age: 33 Year
  Sex: Male

DRUGS (1)
  1. EFFEXOR XR [Suspect]
     Active Substance: VENLAFAXINE HYDROCHLORIDE
     Indication: PSYCHOTIC DISORDER
     Dosage: 75 MG, 1X/DAY
     Route: 048
     Dates: start: 20200421, end: 20200501

REACTIONS (3)
  - Anxiety [Unknown]
  - Akathisia [Unknown]
  - Restlessness [Unknown]

NARRATIVE: CASE EVENT DATE: 2020
